FAERS Safety Report 23970324 (Version 1)
Quarter: 2024Q2

REPORT INFORMATION
  Report Type: Spontaneous
  Country: US (occurrence: US)
  Receive Date: 20240613
  Receipt Date: 20240613
  Transmission Date: 20240716
  Serious: Yes (Hospitalization, Other)
  Sender: FDA-Public Use
  Company Number: US-009507513-2406USA003455

PATIENT
  Age: 54 Year
  Sex: Female

DRUGS (4)
  1. KEYTRUDA [Suspect]
     Active Substance: PEMBROLIZUMAB
     Indication: Triple negative breast cancer
     Dosage: LAST DOSE: 4 DAYS PRIOR TO THE EMERGENCY DEPARTMENT VISIT
  2. DOXORUBICIN [Suspect]
     Active Substance: DOXORUBICIN
     Indication: Triple negative breast cancer
     Dosage: LAST DOSE: 4 DAYS PRIOR TO THE EMERGENCY DEPARTMENT VISIT
  3. CYCLOPHOSPHAMIDE [Suspect]
     Active Substance: CYCLOPHOSPHAMIDE
     Indication: Triple negative breast cancer
     Dosage: LAST DOSE: 4 DAYS PRIOR TO THE EMERGENCY DEPARTMENT VISIT
  4. METHIMAZOLE [Concomitant]
     Active Substance: METHIMAZOLE
     Dosage: 10 MILLIGRAM, QD
     Route: 048

REACTIONS (2)
  - Immune-mediated adrenal insufficiency [Unknown]
  - Immune-mediated hypophysitis [Unknown]
